FAERS Safety Report 18559385 (Version 1)
Quarter: 2020Q4

REPORT INFORMATION
  Report Type: Spontaneous
  Country: US (occurrence: US)
  Receive Date: 20201125
  Receipt Date: 20201125
  Transmission Date: 20210114
  Serious: Yes (Hospitalization)
  Sender: FDA-Public Use
  Company Number: None

PATIENT
  Age: 66 Year
  Sex: Female
  Weight: 76.9 kg

DRUGS (13)
  1. TREMETINIB 1.5MG [Suspect]
     Active Substance: TRAMETINIB
     Indication: ACCIDENT
     Route: 048
     Dates: start: 20190927, end: 20200911
  2. PROCHLORPERAZINE. [Concomitant]
     Active Substance: PROCHLORPERAZINE
  3. DABRAFENIB [Concomitant]
     Active Substance: DABRAFENIB
  4. LEVOTHYROXINE. [Concomitant]
     Active Substance: LEVOTHYROXINE
  5. IPTRATOPIUM-ALBUTEROL [Concomitant]
  6. PAROXETINE. [Concomitant]
     Active Substance: PAROXETINE
  7. MONTELUKAST [Concomitant]
     Active Substance: MONTELUKAST SODIUM
  8. GABAPENTIN. [Concomitant]
     Active Substance: GABAPENTIN
  9. METOPROLOL SUCCINATE. [Concomitant]
     Active Substance: METOPROLOL SUCCINATE
  10. OXYCODONE-ACETAMINOPHEN [Concomitant]
     Active Substance: ACETAMINOPHEN\OXYCODONE HYDROCHLORIDE
  11. LORATADINE. [Concomitant]
     Active Substance: LORATADINE
  12. DABRAFENIB 100MG [Suspect]
     Active Substance: DABRAFENIB
     Indication: ACCIDENT
     Route: 048
     Dates: start: 20190927, end: 20200911
  13. TRAMETINIB [Concomitant]
     Active Substance: TRAMETINIB

REACTIONS (5)
  - Asthenia [None]
  - Malaise [None]
  - Acute respiratory failure [None]
  - Pulmonary embolism [None]
  - Malignant pleural effusion [None]

NARRATIVE: CASE EVENT DATE: 20200728
